FAERS Safety Report 8554330-2 (Version None)
Quarter: 2012Q3

REPORT INFORMATION
  Report Type: 
  Country: None (occurrence: None)
  Receive Date: 20120731
  Receipt Date: 20120718
  Transmission Date: 20120928
  Serious: No
  Sender: FDA-Public Use
  Company Number: US-009507513-1207USA008548

PATIENT

DRUGS (8)
  1. ASPIRIN [Concomitant]
  2. CYANOCOBALAMIN [Concomitant]
  3. RIBASPHERE [Suspect]
  4. METFORMIN HYDROCHLORIDE [Concomitant]
  5. INCIVEK [Suspect]
  6. OMEGA-3 MARINE TRIGLYCERIDES [Concomitant]
  7. VITAMIN E [Concomitant]
  8. PEG-INTRON [Suspect]
     Indication: HEPATITIS C
     Dosage: 120 MICROGRAM, QW
     Route: 058
     Dates: start: 20120501

REACTIONS (7)
  - DECREASED APPETITE [None]
  - MICTURITION URGENCY [None]
  - BLOOD URINE PRESENT [None]
  - WEIGHT DECREASED [None]
  - PALLOR [None]
  - FATIGUE [None]
  - INCONTINENCE [None]
